FAERS Safety Report 4716680-7 (Version None)
Quarter: 2005Q3

REPORT INFORMATION
  Report Type: 
  Country: None (occurrence: None)
  Receive Date: 20050719
  Receipt Date: 20050712
  Transmission Date: 20060218
  Serious: Yes (Hospitalization, Other)
  Sender: FDA-Public Use
  Company Number: US-BRISTOL-MYERS SQUIBB COMPANY-13034913

PATIENT
  Age: 51 Year
  Sex: Male

DRUGS (6)
  1. CETUXIMAB [Suspect]
     Indication: NON-SMALL CELL LUNG CANCER
     Dosage: THERAPY START DATE 03-MAY-05; ALSO GIVEN ON 05-JUL-2005 (6TH COURSE).
     Route: 042
     Dates: start: 20050503
  2. CARBOPLATIN [Suspect]
     Indication: NON-SMALL CELL LUNG CANCER
     Dosage: THERAPY START DATE 06-MAY-05; ALSO GIVEN ON 05-JUL-2005 (3TH COURSE).
     Route: 042
     Dates: start: 20050503
  3. TAXOL [Suspect]
     Indication: NON-SMALL CELL LUNG CANCER
     Dosage: THERAPY START DATE 03-MAY-05; ALSO GIVEN 05-JUL-05 (3TH COURSE).
     Route: 042
     Dates: start: 20050503
  4. HEPSERA [Concomitant]
     Dates: start: 20041001
  5. NADOLOL [Concomitant]
     Dates: start: 20041001
  6. LISINOPRIL [Concomitant]
     Dates: start: 20020401

REACTIONS (4)
  - HAEMATOCRIT DECREASED [None]
  - NEUTROPENIA [None]
  - PLATELET COUNT DECREASED [None]
  - PNEUMONIA [None]
